FAERS Safety Report 16701783 (Version 3)
Quarter: 2020Q1

REPORT INFORMATION
  Report Type: Spontaneous
  Country: JP (occurrence: JP)
  Receive Date: 20190814
  Receipt Date: 20200317
  Transmission Date: 20200409
  Serious: Yes (Hospitalization, Disabling, Other)
  Sender: FDA-Public Use
  Company Number: JP-PFIZER INC-2019342495

PATIENT
  Age: 53 Year
  Sex: Male
  Weight: 80 kg

DRUGS (6)
  1. ZOVIRAX [Suspect]
     Active Substance: ACYCLOVIR
     Indication: CYTOMEGALOVIRUS CHORIORETINITIS
     Dosage: 800 MG, 3X/DAY
     Route: 041
     Dates: start: 20190802, end: 20190807
  2. METOLATE [Suspect]
     Active Substance: METHOTREXATE
     Dosage: 8 MG, WEEKLY (DIVIDED INTO 2 DOSES, ONLY ON WEDNESDAY)
     Route: 048
     Dates: start: 20180926, end: 20181022
  3. METOLATE [Suspect]
     Active Substance: METHOTREXATE
     Dosage: 12 MG, WEEKLY (DIVIDED INTO 2 DOSES, ONLY ON WEDNESDAY)
     Route: 048
     Dates: start: 20181023, end: 20190807
  4. PREDNISOLONE. [Suspect]
     Active Substance: PREDNISOLONE
     Indication: RHEUMATOID ARTHRITIS
     Dosage: 9 MG, 1X/DAY
     Route: 048
     Dates: start: 20190730, end: 20190906
  5. XELJANZ [Suspect]
     Active Substance: TOFACITINIB CITRATE
     Indication: RHEUMATOID ARTHRITIS
     Dosage: 5 MG, 2X/DAY
     Route: 048
     Dates: start: 20180731, end: 20190807
  6. METOLATE [Suspect]
     Active Substance: METHOTREXATE
     Indication: RHEUMATOID ARTHRITIS
     Dosage: 4 MG, WEEKLY (DIVIDED INTO 2 DOSES)
     Route: 048
     Dates: start: 20180828, end: 20180925

REACTIONS (2)
  - Renal disorder [Recovering/Resolving]
  - Cytomegalovirus chorioretinitis [Recovered/Resolved with Sequelae]

NARRATIVE: CASE EVENT DATE: 20190801
